FAERS Safety Report 6413986-0 (Version None)
Quarter: 2009Q4

REPORT INFORMATION
  Report Type: 
  Country: None (occurrence: None)
  Receive Date: 20091026
  Receipt Date: 20091019
  Transmission Date: 20100525
  Serious: Yes (Hospitalization)
  Sender: FDA-Public Use
  Company Number: US-JNJFOC-20090605634

PATIENT
  Sex: Male

DRUGS (2)
  1. DURAGESIC-100 [Suspect]
     Route: 062
  2. DURAGESIC-100 [Suspect]
     Indication: PAIN
     Route: 062

REACTIONS (3)
  - HOSPITALISATION [None]
  - INCORRECT DRUG ADMINISTRATION DURATION [None]
  - WRONG TECHNIQUE IN DRUG USAGE PROCESS [None]
